FAERS Safety Report 6676755-2 (Version None)
Quarter: 2010Q2

REPORT INFORMATION
  Report Type: 
  Country: None (occurrence: None)
  Receive Date: 20100408
  Receipt Date: 20100330
  Transmission Date: 20101027
  Serious: Yes (Hospitalization, Other)
  Sender: FDA-Public Use
  Company Number: 20108545

PATIENT
  Sex: Male

DRUGS (1)
  1. LIORESAL [Suspect]
     Indication: MUSCLE SPASTICITY
     Dosage: 220.2 MCG, DAILY, INTRATHECAL
     Route: 037

REACTIONS (3)
  - DEVICE MALFUNCTION [None]
  - PANCREATITIS [None]
  - RESPIRATORY DISTRESS [None]
